FAERS Safety Report 4762663-0 (Version None)
Quarter: 2005Q3

REPORT INFORMATION
  Report Type: 
  Country: None (occurrence: None)
  Receive Date: 20050902
  Receipt Date: 20050519
  Transmission Date: 20060218
  Serious: Yes (Other)
  Sender: FDA-Public Use
  Company Number: 2005S1001712

PATIENT
  Age: 63 Year
  Sex: Female
  Weight: 81.6475 kg

DRUGS (12)
  1. FENTANYL [Suspect]
     Indication: CANCER PAIN
     Dosage: 75 MCG/HR;TDER
     Dates: start: 20050201
  2. DEXTROPROPOXYPHENE HYDROCHLORIDE [Concomitant]
  3. PROMETHAZINE [Concomitant]
  4. GABAPENTIN [Concomitant]
  5. TOPIRAMATE [Concomitant]
  6. PRAVASTATIN [Concomitant]
  7. HYDROCHLOROTHIAZIDE [Concomitant]
  8. VENLAFAXINE [Concomitant]
  9. CEVIMELINE HYDROCHLORIDE [Concomitant]
  10. LEVOTHYROXINE [Concomitant]
  11. FUROSEMIDE [Concomitant]
  12. CHLORZOXAZONE/PARACETAMOL [Concomitant]

REACTIONS (2)
  - APPLICATION SITE ERYTHEMA [None]
  - DRUG EFFECT DECREASED [None]
